FAERS Safety Report 5778503-7 (Version None)
Quarter: 2008Q2

REPORT INFORMATION
  Report Type: 
  Country: None (occurrence: None)
  Receive Date: 20080618
  Receipt Date: 20080618
  Transmission Date: 20081010
  Serious: No
  Sender: FDA-Public Use
  Company Number: None

PATIENT
  Age: 73 Year
  Sex: Male
  Weight: 91.63 kg

DRUGS (1)
  1. NIACIN [Suspect]
     Indication: HYPERLIPIDAEMIA
     Dosage: 500 MG EVERY DAY PO
     Route: 048
     Dates: start: 20080522, end: 20080605

REACTIONS (3)
  - DIZZINESS [None]
  - FLUSHING [None]
  - UNEVALUABLE EVENT [None]
